FAERS Safety Report 15342580 (Version 1)
Quarter: 2018Q4

REPORT INFORMATION
  Report Type: Spontaneous
  Country: AU (occurrence: AU)
  Receive Date: 20180903
  Receipt Date: 20180903
  Transmission Date: 20190204
  Serious: Yes (Other)
  Sender: FDA-Public Use
  Company Number: AU-009507513-1808AUS013333

PATIENT
  Age: 67 Year
  Sex: Female

DRUGS (1)
  1. FOSAMAX PLUS 70 MG/140 MCG [Suspect]
     Active Substance: ALENDRONATE SODIUM\CHOLECALCIFEROL
     Dosage: 2 TABLETS, WEEKLY
     Route: 048
     Dates: start: 20171122, end: 20171202

REACTIONS (3)
  - Musculoskeletal stiffness [Recovering/Resolving]
  - Peripheral swelling [Recovering/Resolving]
  - Pain in extremity [Recovering/Resolving]

NARRATIVE: CASE EVENT DATE: 201711
